FAERS Safety Report 21884974 (Version 1)
Quarter: 2023Q1

REPORT INFORMATION
  Report Type: Spontaneous
  Country: US (occurrence: US)
  Receive Date: 20230119
  Receipt Date: 20230119
  Transmission Date: 20230417
  Serious: No
  Sender: FDA-Public Use
  Company Number: US-SUN PHARMACEUTICAL INDUSTRIES LTD-2022R1-357314

PATIENT
  Age: 75 Year
  Sex: Male

DRUGS (1)
  1. LEVULAN KERASTICK [Suspect]
     Active Substance: AMINOLEVULINIC ACID HYDROCHLORIDE
     Indication: Photodynamic therapy
     Dosage: 354 MILLIGRAM
     Route: 061

REACTIONS (4)
  - Poor quality product administered [Unknown]
  - Overdose [Unknown]
  - Discomfort [Unknown]
  - Erythema [Unknown]

NARRATIVE: CASE EVENT DATE: 20220921
